FAERS Safety Report 7201741-3 (Version None)
Quarter: 2010Q4

REPORT INFORMATION
  Report Type: 
  Country: None (occurrence: None)
  Receive Date: 20101216
  Receipt Date: 20101206
  Transmission Date: 20110411
  Serious: Yes (Hospitalization)
  Sender: FDA-Public Use
  Company Number: TIF2010A00142

PATIENT
  Age: 69 Year
  Sex: Female

DRUGS (4)
  1. COMPETACT (PIOGLITAZONE HYDROCHLORIDE, METFORMIN HYDROCHLORIDE) [Suspect]
     Dosage: (3 IN 1 D) ORAL
     Route: 048
     Dates: start: 20100125, end: 20101101
  2. ARIMIDEX [Concomitant]
  3. IPERTEN (MANIDIPINE HYDROCHLORIDE) [Concomitant]
  4. ATORVASTATIN CALCIUM [Concomitant]

REACTIONS (2)
  - ACUTE MYOCARDIAL INFARCTION [None]
  - ATRIOVENTRICULAR BLOCK COMPLETE [None]
